FAERS Safety Report 5350546-7 (Version None)
Quarter: 2007Q2

REPORT INFORMATION
  Report Type: 
  Country: None (occurrence: None)
  Receive Date: 20070608
  Receipt Date: 20070529
  Transmission Date: 20071010
  Serious: Yes (Life-Threatening, Disabling)
  Sender: FDA-Public Use
  Company Number: JP-BRISTOL-MYERS SQUIBB COMPANY-13769260

PATIENT
  Age: 24 Year
  Sex: Male

DRUGS (10)
  1. VIDEX [Suspect]
     Indication: HIV INFECTION
     Route: 048
     Dates: start: 19941119
  2. EFAVIRENZ [Suspect]
     Indication: HIV INFECTION
     Dosage: THERAPY STOPPED ON 25-JUL-2000, RESTARTED ON 25-SEP-2000.
     Route: 048
     Dates: start: 20000724, end: 20001002
  3. ZERIT [Suspect]
     Indication: HIV INFECTION
     Route: 048
     Dates: start: 20001225, end: 20011020
  4. INDINIVIR SULFATE [Suspect]
     Indication: HIV INFECTION
     Route: 048
     Dates: start: 20000308, end: 20000524
  5. ZIAGEN [Suspect]
     Dosage: THERAPY STOPPED ON 25-JUL-2000, RESTARTED ON 20-OCT-2001.
     Route: 048
     Dates: start: 20000724, end: 20011027
  6. INVIRASE [Suspect]
     Indication: HIV INFECTION
     Route: 048
     Dates: start: 19990619
  7. RITONAVIR [Suspect]
     Indication: HIV INFECTION
     Dosage: THERAPY STOPPED ON 24-DEC-2000, RESTARTED ON 01-APR-2005.
     Route: 048
     Dates: start: 19990619, end: 20001224
  8. LOPINAVIR + RITONAVIR [Suspect]
     Indication: HIV INFECTION
     Route: 048
     Dates: start: 20001225, end: 20040424
  9. EPIVIR [Suspect]
     Indication: HIV INFECTION
     Route: 048
     Dates: start: 20040515
  10. FACTOR VIII [Concomitant]
     Dates: start: 19991101

REACTIONS (3)
  - DIZZINESS [None]
  - PALPITATIONS [None]
  - PULMONARY HYPERTENSION [None]
